FAERS Safety Report 9020585 (Version 1)
Quarter: 2013Q1

REPORT INFORMATION
  Report Type: Spontaneous
  Country: US (occurrence: US)
  Receive Date: 20130119
  Receipt Date: 20130119
  Transmission Date: 20140127
  Serious: No
  Sender: FDA-Public Use
  Company Number: US-ALLERGAN-1207291US

PATIENT
  Age: 51 Year
  Sex: Female

DRUGS (4)
  1. BOTOX COSMETIC [Suspect]
     Indication: SKIN WRINKLING
     Dosage: 50 UNITS, SINGLE
     Route: 030
     Dates: start: 20120510, end: 20120510
  2. ZYRTEC                             /00884302/ [Concomitant]
     Indication: HYPERSENSITIVITY
     Dosage: UNK
     Route: 048
  3. ZYRTEC                             /00884302/ [Concomitant]
     Indication: CHRONIC SINUSITIS
  4. RADIESSE [Concomitant]
     Indication: DERMAL FILLER INJECTION
     Dosage: UNK
     Dates: start: 20120510

REACTIONS (5)
  - Swelling face [Unknown]
  - Injection site pain [Unknown]
  - Headache [Unknown]
  - Facial paresis [Unknown]
  - Injection site pain [Unknown]
